FAERS Safety Report 6170105-6 (Version None)
Quarter: 2009Q2

REPORT INFORMATION
  Report Type: 
  Country: None (occurrence: None)
  Receive Date: 20090428
  Receipt Date: 20090420
  Transmission Date: 20091009
  Serious: Yes (Other)
  Sender: FDA-Public Use
  Company Number: B0570602A

PATIENT
  Age: 51 Year
  Sex: Female

DRUGS (1)
  1. CLENIL MODULITE [Suspect]
     Indication: COUGH
     Route: 055
     Dates: start: 20081014, end: 20081107

REACTIONS (1)
  - COUGH [None]
